FAERS Safety Report 18926811 (Version 2)
Quarter: 2021Q1

REPORT INFORMATION
  Report Type: Other
  Country: AU (occurrence: AU)
  Receive Date: 20210223
  Receipt Date: 20210309
  Transmission Date: 20210420
  Serious: Yes (Other)
  Sender: FDA-Public Use
  Company Number: AU-ASTELLAS-2021US006155

PATIENT
  Sex: Female

DRUGS (5)
  1. TACROLIMUS. [Suspect]
     Active Substance: TACROLIMUS
     Indication: GLOMERULONEPHRITIS MEMBRANOUS
     Dosage: UNK, UNKNOWN FREQ.
     Route: 065
  2. TACROLIMUS. [Suspect]
     Active Substance: TACROLIMUS
     Dosage: 3? 5MG (LOW?DOSE), TWICE DAILY
     Route: 065
  3. IRBESARTAN. [Suspect]
     Active Substance: IRBESARTAN
     Indication: PROTEINURIA
     Route: 065
     Dates: end: 2016
  4. LABETALOL HYDROCHLORIDE. [Suspect]
     Active Substance: LABETALOL HYDROCHLORIDE
     Indication: HYPERTENSION
     Dosage: UNK UNK, UNKNOWN FREQ.
     Route: 065
  5. IRBESARTAN. [Suspect]
     Active Substance: IRBESARTAN
     Indication: GLOMERULONEPHRITIS MEMBRANOUS
     Dosage: UNK UNK, UNKNOWN FREQ.
     Route: 065
     Dates: start: 2014

REACTIONS (4)
  - Gestational diabetes [Recovered/Resolved]
  - Maternal exposure during pregnancy [Recovered/Resolved]
  - Hypertension [Unknown]
  - Product use in unapproved indication [Unknown]
